FAERS Safety Report 5897935-X (Version None)
Quarter: 2008Q3

REPORT INFORMATION
  Report Type: 
  Country: None (occurrence: None)
  Receive Date: 20080925
  Receipt Date: 20080924
  Transmission Date: 20090109
  Serious: Yes (Hospitalization)
  Sender: FDA-Public Use
  Company Number: A0688571D

PATIENT
  Age: 48 Year
  Sex: Male
  Weight: 67.5 kg

DRUGS (3)
  1. LAPATINIB [Suspect]
     Dosage: 1500MG PER DAY
     Route: 048
     Dates: start: 20070926
  2. CISPLATIN [Suspect]
     Dosage: 62.5MGM2 CYCLIC
     Route: 042
     Dates: start: 20071001
  3. RADIOTHERAPY [Suspect]
     Route: 061
     Dates: start: 20071015

REACTIONS (1)
  - GASTROINTESTINAL FISTULA [None]
